FAERS Safety Report 5337844-8 (Version None)
Quarter: 2007Q2

REPORT INFORMATION
  Report Type: 
  Country: None (occurrence: None)
  Receive Date: 20070308
  Receipt Date: 20070119
  Transmission Date: 20071010
  Serious: No
  Sender: FDA-Public Use
  Company Number: 2006-BP-14576BP

PATIENT
  Age: 79 Year
  Sex: Female

DRUGS (10)
  1. SPIRIVA [Suspect]
     Indication: CHRONIC OBSTRUCTIVE PULMONARY DISEASE
     Dosage: 18 MCG, (18 MCG, 1 IN 1 D), IH
     Route: 055
     Dates: start: 20050501
  2. LASIX [Concomitant]
  3. WARFARIN SODIUM [Concomitant]
  4. SYNTHROID [Concomitant]
  5. BLOOD PRESSURE MEDICATION (ALL OTHER THERAPEUTIC PRODUCTS) [Concomitant]
  6. HEART MEDICATION (ALL OTHER THERAPEUTIC PRODUCTS) [Concomitant]
  7. OXYGEN (OXYGEN) [Concomitant]
  8. LOTREL [Concomitant]
  9. LIPITOR [Concomitant]
  10. MULTI-VITAMINS [Concomitant]

REACTIONS (3)
  - CATARACT [None]
  - DYSPHONIA [None]
  - VOCAL CORD DISORDER [None]
